FAERS Safety Report 8235362-0 (Version None)
Quarter: 2012Q1

REPORT INFORMATION
  Report Type: 
  Country: None (occurrence: None)
  Receive Date: 20120322
  Receipt Date: 20120308
  Transmission Date: 20120608
  Serious: Yes (Hospitalization, Other)
  Sender: FDA-Public Use
  Company Number: 2012P1005736

PATIENT
  Age: 16 Year
  Sex: Male
  Weight: 62.1428 kg

DRUGS (5)
  1. PULMICORT [Concomitant]
  2. ALLEGRA [Concomitant]
  3. UNSPECIFIED VITAMINS [Concomitant]
  4. SOLODYN [Suspect]
     Indication: ACNE
     Dosage: 65 MG; QD; PO
     Route: 048
     Dates: start: 20120215, end: 20120201
  5. CLINDAMYCIN [Concomitant]

REACTIONS (7)
  - URINE KETONE BODY PRESENT [None]
  - PLATELET FUNCTION TEST ABNORMAL [None]
  - EPISTAXIS [None]
  - CONTUSION [None]
  - NEUTROPENIA [None]
  - CONDITION AGGRAVATED [None]
  - ANGIOFIBROMA [None]
